FAERS Safety Report 12161399 (Version 1)
Quarter: 2016Q1

REPORT INFORMATION
  Report Type: Spontaneous
  Country: US (occurrence: US)
  Receive Date: 20160308
  Receipt Date: 20160308
  Transmission Date: 20160526
  Serious: Yes (Death, Other)
  Sender: FDA-Public Use
  Company Number: PHHY2016US027865

PATIENT
  Age: 52 Year
  Sex: Male

DRUGS (5)
  1. INTERLEUKIN-2 [Suspect]
     Active Substance: ALDESLEUKIN
     Indication: METASTATIC MALIGNANT MELANOMA
     Route: 040
  2. FLUDARABINE [Suspect]
     Active Substance: FLUDARABINE PHOSPHATE
     Indication: METASTATIC MALIGNANT MELANOMA
     Route: 065
  3. INTERLEUKIN-2 [Suspect]
     Active Substance: ALDESLEUKIN
     Dosage: 20 MIU, UNK
     Route: 037
     Dates: start: 20101120
  4. INTERLEUKIN-2 [Suspect]
     Active Substance: ALDESLEUKIN
     Dosage: 1 DF, UNK
     Route: 065
  5. CYCLOPHOSPHAMIDE. [Suspect]
     Active Substance: CYCLOPHOSPHAMIDE
     Indication: METASTATIC MALIGNANT MELANOMA
     Route: 065

REACTIONS (16)
  - Metastases to lung [Fatal]
  - Metastases to meninges [Unknown]
  - Chills [Unknown]
  - Metastases to spleen [Unknown]
  - Metastases to muscle [Unknown]
  - Headache [Unknown]
  - Intracranial pressure increased [Unknown]
  - Muscular weakness [Unknown]
  - Nausea [Unknown]
  - Vomiting [Unknown]
  - Metastases to liver [Fatal]
  - Metastases to lymph nodes [Unknown]
  - Metastases to central nervous system [Fatal]
  - Mental disorder [Unknown]
  - Metastases to peritoneum [Unknown]
  - Hypoaesthesia [Unknown]
